FAERS Safety Report 9901317 (Version 3)
Quarter: 2014Q4

REPORT INFORMATION
  Report Type: Spontaneous
  Country: US (occurrence: US)
  Receive Date: 20140217
  Receipt Date: 20141230
  Transmission Date: 20150529
  Serious: Yes (Hospitalization, Other)
  Sender: FDA-Public Use
  Company Number: US-BAYER-2014-024520

PATIENT
  Age: 26 Year
  Sex: Female
  Weight: 97.96 kg

DRUGS (3)
  1. MIRENA [Suspect]
     Active Substance: LEVONORGESTREL
     Indication: CONTRACEPTION
     Dosage: 20 MCG/24HR, CONT
     Route: 015
     Dates: start: 20090217, end: 20100122
  2. MACROBID [Concomitant]
     Active Substance: NITROFURANTOIN\NITROFURANTOIN MONOHYDRATE
  3. FLAGYL [Concomitant]
     Active Substance: METRONIDAZOLE\METRONIDAZOLE HYDROCHLORIDE

REACTIONS (11)
  - Device dislocation [None]
  - Procedural pain [None]
  - Depression [None]
  - Medical device pain [None]
  - Device failure [None]
  - Soft tissue injury [None]
  - Injury [None]
  - Emotional distress [None]
  - Medical device discomfort [None]
  - Pain [None]
  - Scar [None]

NARRATIVE: CASE EVENT DATE: 20100122
